FAERS Safety Report 10790699 (Version 1)
Quarter: 2015Q1

REPORT INFORMATION
  Report Type: Spontaneous
  Country: GB (occurrence: GB)
  Receive Date: 20150212
  Receipt Date: 20150212
  Transmission Date: 20150721
  Serious: Yes (Hospitalization)
  Sender: FDA-Public Use
  Company Number: PHHY2015GB014766

PATIENT
  Age: 73 Year
  Sex: Female

DRUGS (2)
  1. PACLITAXEL. [Suspect]
     Active Substance: PACLITAXEL
     Indication: CHEMOTHERAPY
     Dosage: 234 MG, (ADMINISTERED IN 500ML NACL 0.9% OVER 3 HOURS)
     Route: 041
  2. CARBOPLATIN. [Suspect]
     Active Substance: CARBOPLATIN
     Indication: CHEMOTHERAPY
     Dosage: 480 MG, UNK (ADMINISTERED IN 500ML NACL 0.9% OVER 30 MINUTES)
     Route: 041

REACTIONS (6)
  - Throat tightness [Recovering/Resolving]
  - Paraesthesia [Recovering/Resolving]
  - Infusion related reaction [Recovering/Resolving]
  - Abdominal pain [Recovering/Resolving]
  - Chest discomfort [Recovering/Resolving]
  - Nausea [Recovering/Resolving]
